FAERS Safety Report 19110605 (Version 1)
Quarter: 2021Q2

REPORT INFORMATION
  Report Type: Spontaneous
  Country: GB (occurrence: GB)
  Receive Date: 20210408
  Receipt Date: 20210408
  Transmission Date: 20210717
  Serious: Yes (Other)
  Sender: FDA-Public Use
  Company Number: GB-TEVA-2021-GB-1897915

PATIENT
  Age: 55 Year
  Sex: Female
  Weight: 78 kg

DRUGS (9)
  1. ASPIRIN. [Concomitant]
     Active Substance: ASPIRIN
     Dosage: 1 DOSAGE FORMS DAILY;
     Route: 048
     Dates: start: 20200810
  2. TRIMETHOPRIM. [Suspect]
     Active Substance: TRIMETHOPRIM
     Dosage: 400 MILLIGRAM DAILY;
     Route: 048
     Dates: start: 20210318, end: 20210325
  3. PIVMECILLINAM [Concomitant]
     Active Substance: AMDINOCILLIN PIVOXIL
     Dosage: TWO DF TO BE TAKEN IMMEDIATELY, THEN ONE T.
     Route: 048
     Dates: start: 20210322
  4. RAMIPRIL. [Concomitant]
     Active Substance: RAMIPRIL
     Dosage: 1 DOSAGE FORMS DAILY;    TO REDUCE B.
     Route: 048
     Dates: start: 20210211, end: 20210311
  5. BISOPROLOL [Concomitant]
     Active Substance: BISOPROLOL
     Dosage: 1 DOSAGE FORMS DAILY;
     Dates: start: 20200810
  6. AMLODIPINE [Concomitant]
     Active Substance: AMLODIPINE BESYLATE
     Dosage: 2 DOSAGE FORMS DAILY;
     Dates: start: 20200810
  7. COTRIMOXAZOLE [Concomitant]
     Active Substance: SULFAMETHOXAZOLE\TRIMETHOPRIM
     Dosage: 1 DOSAGE FORMS DAILY; IN THE MORNING
     Dates: start: 20200810
  8. OMEPRAZOLE. [Concomitant]
     Active Substance: OMEPRAZOLE
     Dosage: 2 DOSAGE FORMS DAILY;
     Dates: start: 20200810
  9. SODIUM BICARBONATE. [Concomitant]
     Active Substance: SODIUM BICARBONATE
     Dosage: 6 DOSAGE FORMS DAILY;
     Dates: start: 20200810, end: 20201230

REACTIONS (2)
  - Swelling face [Recovered/Resolved]
  - Paraesthesia [Recovered/Resolved]

NARRATIVE: CASE EVENT DATE: 20210322
